FAERS Safety Report 26140936 (Version 1)
Quarter: 2025Q4

REPORT INFORMATION
  Report Type: Spontaneous
  Country: US (occurrence: US)
  Receive Date: 20251210
  Receipt Date: 20251210
  Transmission Date: 20260118
  Serious: Yes (Other)
  Sender: BIOVITRUM
  Company Number: US-BIOVITRUM-2025-US-017059

PATIENT
  Age: 80 Year
  Sex: Female

DRUGS (1)
  1. PACRITINIB [Suspect]
     Active Substance: PACRITINIB
     Indication: Chronic myelomonocytic leukaemia
     Dosage: TWICE DAILY (USED FOR 16 MONTHS)

REACTIONS (3)
  - Off label use [Recovered/Resolved]
  - Leukopenia [Unknown]
  - Anaemia [Unknown]
